FAERS Safety Report 19683800 (Version 1)
Quarter: 2021Q3

REPORT INFORMATION
  Report Type: Report from Study
  Country: None (occurrence: US)
  Receive Date: 20210811
  Receipt Date: 20210811
  Transmission Date: 20211014
  Serious: Yes (Other)
  Sender: FDA-Public Use
  Company Number: US-ABBVIE-21K-163-4031066-00

PATIENT
  Sex: Female

DRUGS (1)
  1. HUMIRA [Suspect]
     Active Substance: ADALIMUMAB
     Indication: CROHN^S DISEASE
     Dosage: CITRATE FREE
     Route: 058

REACTIONS (11)
  - Fat tissue increased [Unknown]
  - Abdominal operation [Recovered/Resolved]
  - Hernia [Recovered/Resolved]
  - Small intestinal resection [Recovered/Resolved]
  - Transfusion [Recovered/Resolved]
  - Gastrointestinal disorder [Recovered/Resolved]
  - Post procedural complication [Recovered/Resolved]
  - Abscess [Recovered/Resolved]
  - General physical health deterioration [Not Recovered/Not Resolved]
  - Intestinal cyst [Recovered/Resolved]
  - General physical health deterioration [Recovered/Resolved]
